FAERS Safety Report 7208004-0 (Version None)
Quarter: 2011Q1

REPORT INFORMATION
  Report Type: 
  Country: None (occurrence: None)
  Receive Date: 20110104
  Receipt Date: 20101227
  Transmission Date: 20110831
  Serious: Yes (Other)
  Sender: FDA-Public Use
  Company Number: TR-TEVA-261411ISR

PATIENT
  Age: 24 Year
  Sex: Female

DRUGS (1)
  1. METHOTREXATE [Suspect]
     Indication: B-CELL LYMPHOMA

REACTIONS (1)
  - ANAEMIA MEGALOBLASTIC [None]
